FAERS Safety Report 14580907 (Version 2)
Quarter: 2018Q1

REPORT INFORMATION
  Report Type: Report from Study
  Country: CN (occurrence: CN)
  Receive Date: 20180228
  Receipt Date: 20180329
  Transmission Date: 20180509
  Serious: Yes (Other)
  Sender: FDA-Public Use
  Company Number: CN-CIPLA LTD.-2018CN08948

PATIENT

DRUGS (1)
  1. FOLIC ACID. [Suspect]
     Active Substance: FOLIC ACID
     Indication: SUPPLEMENTATION THERAPY
     Dosage: 400 MCG, EVERY DAY
     Route: 065

REACTIONS (2)
  - Exposure during pregnancy [Unknown]
  - Gestational hypertension [Unknown]
